FAERS Safety Report 25186178 (Version 2)
Quarter: 2025Q2

REPORT INFORMATION
  Report Type: Report from Study
  Country: US (occurrence: US)
  Receive Date: 20250410
  Receipt Date: 20250426
  Transmission Date: 20250716
  Serious: Yes (Other)
  Sender: ABBVIE
  Company Number: US-ABBVIE-6214194

PATIENT
  Age: 58 Year
  Sex: Female
  Weight: 97 kg

DRUGS (2)
  1. HUMIRA [Suspect]
     Active Substance: ADALIMUMAB
     Indication: Psoriatic arthropathy
     Dosage: DOSE FORM- SOLUTION FOR INJECTION IN PRE-FILLED PEN, FORM STRENGTH: 40 MILLIGRAM
     Route: 058
     Dates: start: 20200102
  2. XEOMIN [Concomitant]
     Active Substance: INCOBOTULINUMTOXINA
     Indication: Dystonia

REACTIONS (4)
  - Lip disorder [Recovered/Resolved]
  - Trigger finger [Unknown]
  - Oral discomfort [Recovering/Resolving]
  - Tendon disorder [Unknown]

NARRATIVE: CASE EVENT DATE: 20220101
